FAERS Safety Report 8925722 (Version 1)
Quarter: 2012Q4

REPORT INFORMATION
  Report Type: 
  Country: CA (occurrence: CA)
  Receive Date: 20121126
  Receipt Date: 20121126
  Transmission Date: 20130627
  Serious: Yes (Other)
  Sender: FDA-Public Use
  Company Number: CA-ROCHE-1159507

PATIENT
  Sex: Female
  Weight: 250.29 kg

DRUGS (1)
  1. OMALIZUMAB [Suspect]
     Indication: ASTHMA
     Route: 058
     Dates: start: 20090422

REACTIONS (3)
  - Blood pressure increased [Unknown]
  - Heart rate increased [Unknown]
  - Respiratory rate increased [Unknown]
